FAERS Safety Report 24730861 (Version 1)
Quarter: 2024Q4

REPORT INFORMATION
  Report Type: Report from Study
  Country: US (occurrence: US)
  Receive Date: 20241213
  Receipt Date: 20241213
  Transmission Date: 20250114
  Serious: Yes (Other)
  Sender: GILEAD
  Company Number: US-GILEAD-2024-0687979

PATIENT
  Sex: Male

DRUGS (4)
  1. AMBRISENTAN [Suspect]
     Active Substance: AMBRISENTAN
     Indication: Product used for unknown indication
     Dosage: 10 MG, QD
     Route: 065
  2. UPTRAVI [Concomitant]
     Active Substance: SELEXIPAG
  3. TADALAFIL [Concomitant]
     Active Substance: TADALAFIL
  4. WINREVAIR [Concomitant]
     Active Substance: SOTATERCEPT-CSRK

REACTIONS (3)
  - Syncope [Recovered/Resolved]
  - Headache [Unknown]
  - Fatigue [Unknown]
